FAERS Safety Report 9726020 (Version 5)
Quarter: 2016Q4

REPORT INFORMATION
  Report Type: Report from Study
  Country: CZ (occurrence: CZ)
  Receive Date: 20131203
  Receipt Date: 20161223
  Transmission Date: 20170207
  Serious: Yes (Hospitalization)
  Sender: FDA-Public Use
  Company Number: CZ-ROCHE-1291770

PATIENT
  Age: 68 Year
  Sex: Female
  Weight: 97 kg

DRUGS (14)
  1. ENALAPRIL [Concomitant]
     Active Substance: ENALAPRIL
     Indication: HYPERTENSION
     Route: 048
     Dates: start: 2000
  2. INDAPAMIDE. [Concomitant]
     Active Substance: INDAPAMIDE
     Indication: HYPERTENSION
     Route: 048
     Dates: start: 2000
  3. VEMURAFENIB [Suspect]
     Active Substance: VEMURAFENIB
     Dosage: 2 TABLETS TWICE DAILY
     Route: 048
     Dates: start: 20131017
  4. METOCLOPRAMIDE. [Concomitant]
     Active Substance: METOCLOPRAMIDE
     Indication: NAUSEA
     Route: 048
     Dates: start: 20131007
  5. ACEBUTOLOL [Concomitant]
     Active Substance: ACEBUTOLOL
     Indication: HYPERTENSION
     Route: 048
     Dates: start: 2000
  6. BISULEPIN [Concomitant]
     Active Substance: BISULEPIN
     Indication: DERMATITIS
     Route: 065
     Dates: start: 20131011, end: 20131014
  7. OMEPRAZOLE. [Concomitant]
     Active Substance: OMEPRAZOLE
     Indication: ABDOMINAL DISCOMFORT
     Route: 048
     Dates: start: 20130919
  8. ACIDUM SALICYLICUM [Concomitant]
     Indication: PERIPHERAL VENOUS DISEASE
     Route: 048
     Dates: start: 2000
  9. KALII CHLORIDI [Concomitant]
     Indication: HYPOKALAEMIA
     Route: 048
     Dates: start: 2013
  10. ALLOPURINOL. [Concomitant]
     Active Substance: ALLOPURINOL
     Indication: HYPERURICAEMIA
     Route: 048
     Dates: start: 2000
  11. COBIMETINIB [Suspect]
     Active Substance: COBIMETINIB
     Indication: METASTATIC MALIGNANT MELANOMA
     Dosage: BLINDED DOSE?LAST DOSE PRIOR TO THE EVENT : 02/OCT/2013
     Route: 048
     Dates: start: 20130927
  12. BETAMETHASONE. [Concomitant]
     Active Substance: BETAMETHASONE
     Indication: RASH
     Route: 061
     Dates: start: 20131008, end: 20131024
  13. VEMURAFENIB [Suspect]
     Active Substance: VEMURAFENIB
     Indication: METASTATIC MALIGNANT MELANOMA
     Route: 048
     Dates: start: 20130927, end: 20131010
  14. ESCIN [Concomitant]
     Active Substance: ESCIN
     Dosage: INDICATION: RETINAL ABLATION
     Route: 048
     Dates: start: 20131003, end: 20131011

REACTIONS (1)
  - Abdominal pain [Recovered/Resolved]

NARRATIVE: CASE EVENT DATE: 20131011
